FAERS Safety Report 10192935 (Version 1)
Quarter: 2014Q2

REPORT INFORMATION
  Report Type: Report from Study
  Country: US (occurrence: US)
  Receive Date: 20140523
  Receipt Date: 20140523
  Transmission Date: 20141212
  Serious: Yes (Other)
  Sender: FDA-Public Use
  Company Number: US-ABBVIE-14P-163-1238501-00

PATIENT
  Age: 54 Year
  Sex: Male

DRUGS (10)
  1. HUMIRA [Suspect]
     Indication: RHEUMATOID ARTHRITIS
     Dosage: PRESCRIBED
     Dates: end: 201403
  2. HUMIRA [Suspect]
     Dates: start: 201404
  3. GABAPENTIN [Concomitant]
     Indication: NEUROPATHY PERIPHERAL
     Dosage: 2 TABS AT HOUR OF SLEEP
  4. IBUPROFEN [Concomitant]
     Indication: PAIN
     Dosage: 1 EVERY 8 HOURS
  5. VICODIN [Concomitant]
     Indication: PAIN
  6. HYDROCODONE [Concomitant]
     Indication: PAIN
     Dosage: 2 TABLETS
  7. PREDNISONE [Concomitant]
     Indication: PAIN
     Dosage: IN THE MORNING
  8. FOLIC ACID [Concomitant]
     Indication: PAIN
  9. VITAMIN D [Concomitant]
     Indication: PRODUCT USED FOR UNKNOWN INDICATION
     Dosage: 2 TABLETS
  10. LEFLUNOMIDE [Concomitant]
     Indication: PRODUCT USED FOR UNKNOWN INDICATION

REACTIONS (7)
  - Nodule [Not Recovered/Not Resolved]
  - Nodule [Not Recovered/Not Resolved]
  - Local swelling [Not Recovered/Not Resolved]
  - Labyrinthitis [Recovered/Resolved]
  - Ear haemorrhage [Recovered/Resolved]
  - Middle ear effusion [Recovered/Resolved]
  - Pain [Unknown]
